FAERS Safety Report 8824428 (Version 2)
Quarter: 2012Q4

REPORT INFORMATION
  Report Type: Report from Study
  Country: JP (occurrence: JP)
  Receive Date: 20121004
  Receipt Date: 20121128
  Transmission Date: 20130627
  Serious: Yes (Other)
  Sender: FDA-Public Use
  Company Number: JP-JNJFOC-20121001155

PATIENT
  Age: 45 Year
  Sex: Male
  Weight: 72 kg

DRUGS (7)
  1. INVEGA [Suspect]
     Indication: SCHIZOPHRENIA, PARANOID TYPE
     Route: 048
     Dates: start: 20110624, end: 20120118
  2. INVEGA [Suspect]
     Indication: SCHIZOPHRENIA, PARANOID TYPE
     Route: 048
     Dates: start: 20110618, end: 20110623
  3. INVEGA [Suspect]
     Indication: SCHIZOPHRENIA, PARANOID TYPE
     Route: 048
     Dates: start: 20110613, end: 20110617
  4. HALOPERIDOL [Concomitant]
     Indication: SCHIZOPHRENIA, PARANOID TYPE
     Route: 048
  5. CHLORPROMAZINE HYDROCHLORIDE [Concomitant]
     Indication: SCHIZOPHRENIA, PARANOID TYPE
     Route: 048
  6. BLONANSERIN [Concomitant]
     Indication: SCHIZOPHRENIA, PARANOID TYPE
     Route: 048
  7. PANTOSIN [Concomitant]
     Indication: INTESTINAL OBSTRUCTION
     Route: 065
     Dates: start: 20120117, end: 20120117

REACTIONS (1)
  - Intestinal obstruction [Recovered/Resolved]
